FAERS Safety Report 8777816 (Version 2)
Quarter: 2012Q4

REPORT INFORMATION
  Report Type: 
  Country: CL (occurrence: CL)
  Receive Date: 20120911
  Receipt Date: 20120913
  Transmission Date: 20130627
  Serious: Yes (Other)
  Sender: FDA-Public Use
  Company Number: PHHY2012CL078126

PATIENT
  Age: 59 Year
  Sex: Male

DRUGS (4)
  1. TAREG [Suspect]
     Indication: HYPERTENSION
     Dosage: 80 mg, BID (80mg in the morning and 80mg at night)
     Dates: start: 2005
  2. NITRENDIPINE [Concomitant]
  3. ASPIRIN [Concomitant]
  4. ATORVASTATIN [Concomitant]

REACTIONS (4)
  - Cerebrovascular accident [Recovered/Resolved with Sequelae]
  - Hemiplegia [Recovered/Resolved with Sequelae]
  - Wrong technique in drug usage process [Unknown]
  - Arterial occlusive disease [None]
